FAERS Safety Report 5583204-4 (Version None)
Quarter: 2008Q1

REPORT INFORMATION
  Report Type: 
  Country: None (occurrence: None)
  Receive Date: 20080107
  Receipt Date: 20080103
  Transmission Date: 20080703
  Serious: Yes (Hospitalization)
  Sender: FDA-Public Use
  Company Number: FR-SANOFI-SYNTHELABO-F01200701589

PATIENT
  Sex: Male

DRUGS (3)
  1. FLUOROURACIL [Suspect]
     Dosage: 730 MG BOLUS THEN 4400 MG CIV
     Route: 042
     Dates: start: 20070928, end: 20071108
  2. FOLINIC ACID [Suspect]
     Route: 042
     Dates: start: 20070928, end: 20071108
  3. OXALIPLATIN [Suspect]
     Indication: ADENOCARCINOMA PANCREAS
     Route: 042
     Dates: start: 20070928, end: 20071108

REACTIONS (6)
  - ABDOMINAL PAIN [None]
  - ASCITES [None]
  - DIARRHOEA [None]
  - JAUNDICE [None]
  - OEDEMA [None]
  - VOMITING [None]
